FAERS Safety Report 5635831-3 (Version None)
Quarter: 2008Q1

REPORT INFORMATION
  Report Type: 
  Country: None (occurrence: None)
  Receive Date: 20080221
  Receipt Date: 20080211
  Transmission Date: 20080703
  Serious: Yes (Other)
  Sender: FDA-Public Use
  Company Number: FRP08000155

PATIENT
  Age: 80 Year
  Sex: Female

DRUGS (6)
  1. ACTONEL [Suspect]
     Indication: POLYMYALGIA RHEUMATICA
     Dosage: 35 MG, 1/WEEK, ORAL
     Route: 048
     Dates: start: 20071003, end: 20080111
  2. ZALDIAR(PARACETAMOL, TRAMADOL HYDROCHLORIDE) [Suspect]
     Dosage: ORAL
     Route: 048
     Dates: end: 20080111
  3. INIPOMP /01263201/ (PANTOPRAZOLE) [Suspect]
     Dosage: ORAL
     Route: 048
     Dates: end: 20080111
  4. TARKA [Suspect]
     Dosage: ORAL
     Route: 048
     Dates: end: 20080111
  5. ALPRAZOLAM [Suspect]
     Dosage: ORAL
     Route: 048
     Dates: end: 20080111
  6. PREDNISONE [Concomitant]

REACTIONS (2)
  - AGRANULOCYTOSIS [None]
  - PLATELET COUNT DECREASED [None]
